FAERS Safety Report 19103240 (Version 2)
Quarter: 2021Q2

REPORT INFORMATION
  Report Type: Spontaneous
  Country: DE (occurrence: DE)
  Receive Date: 20210407
  Receipt Date: 20210510
  Transmission Date: 20210717
  Serious: Yes (Hospitalization, Other)
  Sender: FDA-Public Use
  Company Number: NVSC2021DE074788

PATIENT
  Age: 42 Year
  Sex: Male
  Weight: 94 kg

DRUGS (32)
  1. PARACETAMOL [Suspect]
     Active Substance: ACETAMINOPHEN
     Indication: PYREXIA
     Dosage: TWICE A DAY ONGOING
     Route: 042
     Dates: start: 20191127
  2. LOPERAMIDE HYDROCHLORIDE. [Concomitant]
     Active Substance: LOPERAMIDE HYDROCHLORIDE
     Indication: DIARRHOEA
     Dosage: UNK
     Route: 065
     Dates: start: 20191130, end: 20191130
  3. SULFAMETHOXAZOLE, TRIMETHOPRIM, BROMHEXINE HY [Concomitant]
     Indication: ANTIBIOTIC PROPHYLAXIS
     Dosage: UNK (ONGOING)
     Route: 065
     Dates: start: 20191204
  4. DOXYLAMINE SUCCINATE. [Concomitant]
     Active Substance: DOXYLAMINE SUCCINATE
     Indication: NAUSEA
     Dosage: UNK
     Route: 065
     Dates: start: 20191128, end: 20191128
  5. IPRATROPIUM BROMIDE. [Concomitant]
     Active Substance: IPRATROPIUM BROMIDE
     Indication: DYSPNOEA
     Dosage: UNK
     Route: 065
     Dates: start: 20191130, end: 20191204
  6. GRANISETRON HYDROCHLORIDE. [Concomitant]
     Active Substance: GRANISETRON HYDROCHLORIDE
     Indication: NAUSEA
     Dosage: UNK
     Route: 065
     Dates: start: 20191126, end: 20191130
  7. POTASSIUM CHLORIDE. [Concomitant]
     Active Substance: POTASSIUM CHLORIDE
     Indication: CONSTIPATION PROPHYLAXIS
     Dosage: UNK
     Route: 065
     Dates: start: 20191130, end: 20191204
  8. POTASSIUM CHLORIDE. [Concomitant]
     Active Substance: POTASSIUM CHLORIDE
     Dosage: UNK
     Route: 065
     Dates: start: 20191130, end: 20191207
  9. POSACONAZOLE [Concomitant]
     Active Substance: POSACONAZOLE
     Indication: PROPHYLAXIS
     Dosage: UNK (ONGOING)
     Route: 065
     Dates: start: 20191129
  10. MORPHINE SULFATE. [Concomitant]
     Active Substance: MORPHINE SULFATE
     Indication: PAIN
     Dosage: UNK
     Route: 065
     Dates: start: 20191204, end: 20191211
  11. COLLOIDAL SILICON DIOXIDE [Concomitant]
     Indication: DIARRHOEA
     Dosage: UNK (ONGOING)
     Route: 065
     Dates: start: 20191127
  12. DAUNORUBICIN HYDROCHLORIDE. [Suspect]
     Active Substance: DAUNORUBICIN HYDROCHLORIDE
     Indication: ACUTE MYELOID LEUKAEMIA
     Dosage: DAILY BY CONTINUOUS INFUSION
     Route: 041
     Dates: start: 20191126, end: 20191128
  13. SALBUTAMOL SULFATE [Concomitant]
     Active Substance: ALBUTEROL SULFATE
     Indication: DYSPNOEA
     Dosage: UNK
     Route: 065
     Dates: start: 20191130, end: 20191204
  14. PETHIDINE HYDROCHLORIDE [Concomitant]
     Active Substance: MEPERIDINE HYDROCHLORIDE
     Indication: SEPSIS
     Dosage: UNK
     Route: 065
     Dates: start: 20191203, end: 20191205
  15. SULFAMETHOXAZOLE, TRIMETHOPRIM, BROMHEXINE HY [Concomitant]
     Indication: ANTIBIOTIC PROPHYLAXIS
     Dosage: ONGOING
     Route: 065
     Dates: start: 20191204
  16. CYTARABINE. [Suspect]
     Active Substance: CYTARABINE
     Indication: ACUTE MYELOID LEUKAEMIA
     Dosage: INDUCTION, DAILY BY CONTINUOUS INFUSION
     Route: 041
     Dates: start: 20191126
  17. SALVIA OFFICINALIS [Concomitant]
     Indication: ORAL DISORDER
     Dosage: UNK (ONGOING)
     Route: 065
     Dates: start: 20191126
  18. DIMETINDENE MALEATE [Concomitant]
     Active Substance: DIMETHINDENE MALEATE
     Indication: RASH
     Dosage: UNK
     Route: 065
     Dates: start: 20191203, end: 20191203
  19. CLARITHROMYCIN. [Concomitant]
     Active Substance: CLARITHROMYCIN
     Indication: SEPSIS
     Dosage: UNK
     Route: 065
     Dates: start: 20191207, end: 20191209
  20. PIPERACILLIN SODIUM,TAZOBACTAM SODIUM [Suspect]
     Active Substance: PIPERACILLIN SODIUM\TAZOBACTAM SODIUM
     Indication: C-REACTIVE PROTEIN INCREASED
     Dosage: THRICE A DAY
     Route: 042
     Dates: start: 20191116, end: 20191211
  21. MEROPENEM. [Suspect]
     Active Substance: MEROPENEM
     Indication: SEPSIS
     Dosage: THRICE A DAY
     Route: 042
     Dates: start: 20191201, end: 20191204
  22. VALACICLOVIR [Concomitant]
     Active Substance: VALACYCLOVIR HYDROCHLORIDE
     Indication: PROPHYLAXIS
     Dosage: UNK (ONGOING)
     Route: 065
     Dates: start: 20191204
  23. PANTOPRAZOLE SODIUM SESQUIHYDRATE [Concomitant]
     Active Substance: PANTOPRAZOLE SODIUM
     Indication: GASTRITIS
     Dosage: UNK
     Route: 065
     Dates: start: 20191126, end: 20191210
  24. METAMIZOLE SODIUM [Concomitant]
     Active Substance: METAMIZOLE SODIUM
     Indication: PAIN
     Dosage: UNK
     Route: 065
  25. DEXPANTHENOL. [Concomitant]
     Active Substance: DEXPANTHENOL
     Indication: ORAL DISORDER
     Dosage: UNK (ONGOING)
     Route: 065
     Dates: start: 20191208
  26. SODIUM HYDROGEN CARBONATE [Concomitant]
     Active Substance: SODIUM BICARBONATE
     Indication: CONSTIPATION PROPHYLAXIS
     Dosage: UNK
     Route: 065
     Dates: start: 20191204, end: 20191207
  27. GRANISETRON [Concomitant]
     Active Substance: GRANISETRON
     Indication: NAUSEA
     Dosage: UNK
     Route: 065
     Dates: start: 20191128, end: 20191204
  28. CALCIUM [Concomitant]
     Active Substance: CALCIUM
     Indication: ORAL DISORDER
     Dosage: UNK
     Route: 065
     Dates: start: 20191206, end: 20191206
  29. FUROSEMIDE. [Concomitant]
     Active Substance: FUROSEMIDE
     Indication: OEDEMA PERIPHERAL
     Dosage: UNK
     Route: 065
     Dates: start: 20191130, end: 20191209
  30. NORADRENALINE HYDROCHLORIDE [Concomitant]
     Active Substance: NOREPINEPHRINE HYDROCHLORIDE, (+/-)-
     Indication: SEPSIS
     Dosage: UNK
     Route: 065
     Dates: start: 20191202, end: 20191203
  31. METAMIZOLE SODIUM [Concomitant]
     Active Substance: METAMIZOLE SODIUM
     Indication: PYREXIA
     Dosage: ONGOING
     Route: 065
     Dates: start: 20191120
  32. AMPHOTERICIN B. [Concomitant]
     Active Substance: AMPHOTERICIN B
     Indication: PROPHYLAXIS
     Dosage: UNK
     Route: 065
     Dates: start: 20191126, end: 20191130

REACTIONS (1)
  - Drug-induced liver injury [Recovered/Resolved]

NARRATIVE: CASE EVENT DATE: 20191212
